FAERS Safety Report 22528101 (Version 2)
Quarter: 2024Q4

REPORT INFORMATION
  Report Type: Spontaneous
  Country: BR (occurrence: BR)
  Receive Date: 20230607
  Receipt Date: 20241215
  Transmission Date: 20250115
  Serious: No
  Sender: CELLTRION
  Company Number: BR-CELLTRION INC.-2023BR011421

PATIENT

DRUGS (12)
  1. TRUXIMA [Suspect]
     Active Substance: RITUXIMAB-ABBS
     Indication: Scleroderma
     Dosage: 4 AMPOULES EVERY 6 MONTH
     Route: 042
     Dates: start: 20230616
  2. TRUXIMA [Suspect]
     Active Substance: RITUXIMAB-ABBS
     Indication: Rheumatoid arthritis
     Dosage: 2 AMPOULES (500MG/50ML) EVERY 6 MONTHS
     Route: 042
     Dates: start: 202305
  3. METHOTREXATE [Concomitant]
     Active Substance: METHOTREXATE
     Indication: Scleroderma
     Dosage: 0.6 MG, PER WEEK, STARTED 14 YEARS AGO
     Route: 058
  4. METHOTREXATE [Concomitant]
     Active Substance: METHOTREXATE
     Indication: Arthritis
  5. PREDNISONE [Concomitant]
     Active Substance: PREDNISONE
     Indication: Rheumatoid arthritis
     Dosage: 1 CAPSULE PER DAY, STARTED 14 YEARS AGO
     Route: 048
  6. CILOSTAZOL [Concomitant]
     Active Substance: CILOSTAZOL
     Indication: Vasculitis
     Dosage: 2 CAPSULE PER DAY, STARTED 14 YEARS AGO
     Route: 048
  7. CILOSTAZOL [Concomitant]
     Active Substance: CILOSTAZOL
     Dosage: 100MG AT 1 CAPSULE A DAY
     Route: 048
  8. NIMODIPINE [Concomitant]
     Active Substance: NIMODIPINE
     Dosage: 1 CAPSULE PER DAY, STARTED 14 YEARS AGO
     Route: 048
  9. NIFEDIPINE [Concomitant]
     Active Substance: NIFEDIPINE
     Indication: Vasculitis
     Dosage: 1 CAPSULE PER DAY, STARTED 14 YEARS AGO
     Route: 048
  10. FOLIC ACID [Concomitant]
     Active Substance: FOLIC ACID
     Indication: Rheumatoid arthritis
     Dosage: 1 CAPSULE PER DAY, STARTED 14 YEARS AGO
     Route: 048
  11. FOLIC ACID [Concomitant]
     Active Substance: FOLIC ACID
     Dosage: 2 CAPSULES A DAY
     Route: 048
  12. OMEPRAZOLE [Concomitant]
     Active Substance: OMEPRAZOLE
     Dosage: 1 CAPSULE PER DAY, STARTED 14 YEARS AGO
     Route: 048

REACTIONS (5)
  - Ligament sprain [Not Recovered/Not Resolved]
  - Arthralgia [Not Recovered/Not Resolved]
  - Product container issue [Not Recovered/Not Resolved]
  - Off label use [Not Recovered/Not Resolved]
  - Incorrect dose administered [Not Recovered/Not Resolved]

NARRATIVE: CASE EVENT DATE: 20230501
